FAERS Safety Report 23348845 (Version 2)
Quarter: 2024Q1

REPORT INFORMATION
  Report Type: Spontaneous
  Country: FR (occurrence: FR)
  Receive Date: 20231229
  Receipt Date: 20240109
  Transmission Date: 20240409
  Serious: Yes (Death, Life-Threatening)
  Sender: FDA-Public Use
  Company Number: None

PATIENT
  Age: 34 Year
  Sex: Male
  Weight: 99 kg

DRUGS (19)
  1. CONCERTA [Suspect]
     Active Substance: METHYLPHENIDATE HYDROCHLORIDE
     Indication: Product used for unknown indication
     Dosage: 1 TAB IN THE MORNING
     Route: 048
     Dates: start: 20231204
  2. QUETIAPINE [Suspect]
     Active Substance: QUETIAPINE
     Indication: Schizophrenia
     Dosage: 1 TAB AT NIGHT
     Route: 048
     Dates: start: 20231130
  3. QUETIAPINE [Suspect]
     Active Substance: QUETIAPINE
  4. METHYLPHENIDATE HYDROCHLORIDE [Suspect]
     Active Substance: METHYLPHENIDATE HYDROCHLORIDE
     Indication: Product used for unknown indication
     Dosage: 2 TABS AT 8 A.M., 1 TAB AT 10 A.M., 2 TABS AT 12 P.M., 1 TAB AT 2 P.M., 2 TABS ?AT 4 P.M., ORAL
     Route: 048
     Dates: start: 20231205
  5. TRIMEPRAZINE [Suspect]
     Active Substance: TRIMEPRAZINE
     Indication: Product used for unknown indication
     Dosage: 4%, 40 MG AT BED TIME
     Route: 048
     Dates: start: 20231130
  6. TROSPIUM CHLORIDE [Suspect]
     Active Substance: TROSPIUM CHLORIDE
     Indication: Product used for unknown indication
     Dosage: , 1 TAB IN THE MORNING
     Route: 048
     Dates: start: 20231130
  7. LOXAPINE [Suspect]
     Active Substance: LOXAPINE
     Indication: Schizophrenia
     Dosage: 40 MG IN THE MORNING, NOON, EVENING AND NIGHT IF NECESSARY ON ORAL ROUTE
     Route: 048
     Dates: start: 20231214
  8. LOXAPINE [Suspect]
     Active Substance: LOXAPINE
     Indication: Schizophrenia
     Dosage: 50 TO 100 MG/DAY IF NECESSARY
     Route: 048
     Dates: start: 20231130, end: 20231213
  9. LEVOMEPROMAZINE HYDROCHLORIDE [Suspect]
     Active Substance: LEVOMEPROMAZINE HYDROCHLORIDE
     Indication: Schizophrenia
     Dosage: 60 DROPS AT NIGHT
     Route: 048
     Dates: start: 20231130
  10. CLOZAPINE [Suspect]
     Active Substance: CLOZAPINE
     Indication: Schizophrenia
     Dosage: 2 TABS IN THE MORNING, 1 TAB IN THE EVENING, ORAL
     Route: 048
     Dates: start: 20231212
  11. VENLAFAXINE [Concomitant]
     Active Substance: VENLAFAXINE HYDROCHLORIDE
     Dosage: 2 TABS IN THE MORNING, 1 AT MIDDAY, ORAL ROUTE
     Route: 048
  12. ARTANE [Concomitant]
     Active Substance: TRIHEXYPHENIDYL HYDROCHLORIDE
     Dosage: 1 TAB IN THE EVENING, ORA
     Route: 048
  13. DUPHALAC [Concomitant]
     Active Substance: LACTULOSE
     Dosage: 10G/15ML, 1 SACHET IN THE MORNING AND EVENING
     Route: 048
  14. POLYETHYLENE GLYCOLS [Concomitant]
     Active Substance: POLYETHYLENE GLYCOLS
     Dosage: 2 SACHETS AT LUNCHTIME IF NECESSARY
     Route: 048
  15. DOLIPRANE [Concomitant]
     Active Substance: ACETAMINOPHEN
     Dosage: 2 TABS IN THE MORNING, NOON AND EVENING IF NECESSARY
     Route: 048
  16. FOLIC ACID [Concomitant]
     Active Substance: FOLIC ACID
     Dosage: 1 TAB IN THE MORNING, ORAL
     Route: 048
  17. VALIUM [Concomitant]
     Active Substance: DIAZEPAM
     Dosage: 1% ORAL SOLUTION, 30 DROPS MORNING, NOON, NIGHT
     Route: 048
  18. ZOLPIDEM TARTRATE [Concomitant]
     Active Substance: ZOLPIDEM TARTRATE
     Dosage: 1 TAB AT NIGHT
     Route: 048
  19. OLANZAPINE [Concomitant]
     Active Substance: OLANZAPINE
     Dosage: 1 TAB IN THE EVENING
     Route: 048

REACTIONS (1)
  - Large intestinal obstruction [Fatal]

NARRATIVE: CASE EVENT DATE: 20231214
